FAERS Safety Report 6369555-4 (Version None)
Quarter: 2009Q3

REPORT INFORMATION
  Report Type: 
  Country: None (occurrence: None)
  Receive Date: 20090923
  Receipt Date: 20090916
  Transmission Date: 20100115
  Serious: Yes (Other)
  Sender: FDA-Public Use
  Company Number: US-JNJFOC-20090801938

PATIENT
  Sex: Female
  Weight: 72.12 kg

DRUGS (2)
  1. TOPAMAX [Suspect]
     Dosage: FOR 6 DAYS
     Route: 048
  2. TOPAMAX [Suspect]
     Indication: MIGRAINE PROPHYLAXIS
     Dosage: 25 MG ONCE IN AM AND ONCE IN PM
     Route: 048

REACTIONS (1)
  - COGNITIVE DISORDER [None]
